FAERS Safety Report 19443418 (Version 1)
Quarter: 2021Q2

REPORT INFORMATION
  Report Type: Spontaneous
  Country: US (occurrence: US)
  Receive Date: 20210621
  Receipt Date: 20210621
  Transmission Date: 20210717
  Serious: Yes (Hospitalization, Other)
  Sender: FDA-Public Use
  Company Number: US-PFIZER INC-2021677368

PATIENT
  Age: 60 Year
  Sex: Male
  Weight: 83.9 kg

DRUGS (5)
  1. CHLORPROPAMIDE. [Concomitant]
     Active Substance: CHLORPROPAMIDE
     Indication: DIABETES MELLITUS
     Dosage: 500 MG, 3X/DAY
  2. CHLORPROPAMIDE. [Concomitant]
     Active Substance: CHLORPROPAMIDE
     Indication: POLYDIPSIA
  3. PROPANOLOL HCL [Suspect]
     Active Substance: PROPRANOLOL HYDROCHLORIDE
     Indication: HYPERTENSION
     Dosage: 20 MG, 3X/DAY
  4. CHLORPROPAMIDE. [Concomitant]
     Active Substance: CHLORPROPAMIDE
     Indication: POLYURIA
  5. HYDROCHLOROTHIAZIDE. [Suspect]
     Active Substance: HYDROCHLOROTHIAZIDE
     Indication: HYPERTENSION
     Dosage: 50 MG, 2X/DAY

REACTIONS (2)
  - Hypokalaemia [Unknown]
  - Diabetes mellitus inadequate control [Unknown]
